FAERS Safety Report 13440098 (Version 1)
Quarter: 2017Q2

REPORT INFORMATION
  Report Type: Spontaneous
  Country: US (occurrence: US)
  Receive Date: 20170413
  Receipt Date: 20170413
  Transmission Date: 20170830
  Serious: Yes (Death, Other)
  Sender: FDA-Public Use
  Company Number: US-ASTELLAS-2016US016883

PATIENT
  Sex: Male

DRUGS (1)
  1. PROGRAF [Suspect]
     Active Substance: TACROLIMUS\TACROLIMUS ANHYDROUS
     Indication: TRANSPLANT
     Dosage: 04 CAPSULE EVERY MORNING AND 05 CAPSULE EVERY NIGHT DAILY
     Route: 048
     Dates: start: 20140522, end: 20160413

REACTIONS (1)
  - Sepsis [Fatal]
